FAERS Safety Report 22320369 (Version 1)
Quarter: 2023Q2

REPORT INFORMATION
  Report Type: Spontaneous
  Country: AU (occurrence: None)
  Receive Date: 20230515
  Receipt Date: 20230515
  Transmission Date: 20230721
  Serious: Yes (Hospitalization, Disabling, Other)
  Sender: FDA-Public Use
  Company Number: 2023A111662

PATIENT
  Sex: Male

DRUGS (24)
  1. SEROQUEL [Suspect]
     Active Substance: QUETIAPINE FUMARATE
     Indication: Product used for unknown indication
     Dosage: 400MG NOCTE
     Dates: start: 2007
  2. SEROQUEL [Suspect]
     Active Substance: QUETIAPINE FUMARATE
     Indication: Product used for unknown indication
     Dosage: HIGHER DOSES OF SEROQUEL (}400MG)
  3. OLANZAPINE [Suspect]
     Active Substance: OLANZAPINE
     Indication: Product used for unknown indication
  4. ZIPRASIDONE [Suspect]
     Active Substance: ZIPRASIDONE
     Indication: Product used for unknown indication
  5. RISPERIDONE [Suspect]
     Active Substance: RISPERIDONE
     Indication: Product used for unknown indication
  6. REBOXETINE [Suspect]
     Active Substance: REBOXETINE
     Indication: Product used for unknown indication
  7. AMISULPRIDE [Suspect]
     Active Substance: AMISULPRIDE
     Indication: Product used for unknown indication
  8. CLOZAPINE [Concomitant]
     Active Substance: CLOZAPINE
  9. BREXPIPIRAZOLE [Concomitant]
  10. CARIPRAZINE [Concomitant]
     Active Substance: CARIPRAZINE
  11. CHLORPROMAZINE [Concomitant]
     Active Substance: CHLORPROMAZINE
  12. ACETAMINOPHEN [Concomitant]
     Active Substance: ACETAMINOPHEN
  13. DIAZEPAM [Concomitant]
     Active Substance: DIAZEPAM
  14. LITHIUM [Concomitant]
     Active Substance: LITHIUM
  15. ZUCLOPENTHIXOL [Concomitant]
     Active Substance: ZUCLOPENTHIXOL
  16. VENLAFAXINE [Concomitant]
     Active Substance: VENLAFAXINE HYDROCHLORIDE
     Dates: start: 2007
  17. VALPROATE SODIUM [Concomitant]
     Active Substance: VALPROATE SODIUM
     Dosage: 300MG MANE
  18. VALPROATE SODIUM [Concomitant]
     Active Substance: VALPROATE SODIUM
     Dosage: 1500MG NOCTE
  19. VALPROATE SODIUM [Concomitant]
     Active Substance: VALPROATE SODIUM
  20. ROSUVASTATIN [Concomitant]
     Active Substance: ROSUVASTATIN
  21. CLONAZEPAM [Concomitant]
     Active Substance: CLONAZEPAM
  22. PROPRANOLOL [Concomitant]
     Active Substance: PROPRANOLOL HYDROCHLORIDE
  23. ARIPIPRAZOLE [Concomitant]
     Active Substance: ARIPIPRAZOLE
     Dosage: 300MG MANE
     Dates: start: 2007
  24. CHLORPROMAZINE [Concomitant]
     Active Substance: CHLORPROMAZINE

REACTIONS (4)
  - Spasmodic dysphonia [Unknown]
  - Mental disorder [Unknown]
  - Extrapyramidal disorder [Unknown]
  - Dizziness [Unknown]
